FAERS Safety Report 6691659-7 (Version None)
Quarter: 2010Q2

REPORT INFORMATION
  Report Type: 
  Country: None (occurrence: None)
  Receive Date: 20100422
  Receipt Date: 20090511
  Transmission Date: 20101027
  Serious: No
  Sender: FDA-Public Use
  Company Number: US-ASTRAZENECA-2009UW12118

PATIENT
  Age: 72 Year
  Sex: Male
  Weight: 91.2 kg

DRUGS (4)
  1. TOPROL-XL [Suspect]
     Indication: HYPERTENSION
     Route: 048
     Dates: start: 20081101
  2. TOPROL-XL [Suspect]
     Dosage: DOSE UNSPECIFIED (LESS THAN 200 MG)
     Route: 048
  3. LOTRIL [Concomitant]
  4. ACTOS [Concomitant]

REACTIONS (8)
  - ARTHRALGIA [None]
  - CONFUSIONAL STATE [None]
  - CONTUSION [None]
  - DIARRHOEA [None]
  - FATIGUE [None]
  - INSOMNIA [None]
  - RASH [None]
  - THIRST [None]
